FAERS Safety Report 9188241 (Version 1)
Quarter: 2013Q1

REPORT INFORMATION
  Report Type: Spontaneous
  Country: US (occurrence: US)
  Receive Date: 20130325
  Receipt Date: 20130325
  Transmission Date: 20140127
  Serious: Yes (Life-Threatening, Other)
  Sender: FDA-Public Use
  Company Number: US-JNJFOC-20130312487

PATIENT
  Age: 9 Year
  Sex: Female

DRUGS (2)
  1. DOXORUBICIN HYDROCHLORIDE [Suspect]
     Indication: SARCOMA
     Route: 042
  2. IFOSFAMIDE [Suspect]
     Indication: SARCOMA
     Route: 042

REACTIONS (1)
  - Paraneoplastic syndrome [Recovered/Resolved]
